FAERS Safety Report 7150435-1 (Version None)
Quarter: 2010Q4

REPORT INFORMATION
  Report Type: 
  Country: None (occurrence: None)
  Receive Date: 20101210
  Receipt Date: 20101201
  Transmission Date: 20110411
  Serious: Yes (Hospitalization)
  Sender: FDA-Public Use
  Company Number: PHHO2010DE18242

PATIENT
  Sex: Female
  Weight: 53 kg

DRUGS (1)
  1. FTY 720 FTY+ [Suspect]
     Indication: MULTIPLE SCLEROSIS
     Dosage: 0.5 MG, QD
     Route: 048
     Dates: start: 20100819

REACTIONS (2)
  - ARTHRALGIA [None]
  - OSTEOPENIA [None]
